FAERS Safety Report 7391993-1 (Version None)
Quarter: 2011Q2

REPORT INFORMATION
  Report Type: 
  Country: None (occurrence: None)
  Receive Date: 20110404
  Receipt Date: 20110328
  Transmission Date: 20111010
  Serious: Yes (Life-Threatening, Hospitalization)
  Sender: FDA-Public Use
  Company Number: PHHY2011FR25365

PATIENT
  Sex: Male

DRUGS (5)
  1. GLEEVEC [Suspect]
     Indication: CHRONIC MYELOID LEUKAEMIA
     Dosage: 400 MG, QD
     Route: 048
     Dates: start: 20040101, end: 20040301
  2. GLEEVEC [Suspect]
     Dosage: 100 MG, TID
     Route: 048
     Dates: start: 20040601, end: 20041227
  3. SPRYCEL [Suspect]
     Dosage: 20 MG, TWO DF ORALLY TWICE DAILY
     Route: 048
     Dates: start: 20050101
  4. TAMSULOSIN HCL [Concomitant]
     Dosage: 0.4 MG, QD
     Route: 048
  5. SPIRIVA [Concomitant]
     Indication: CHRONIC OBSTRUCTIVE PULMONARY DISEASE
     Dosage: 18 UG, QD

REACTIONS (15)
  - NEOPLASM MALIGNANT [None]
  - DRUG RESISTANCE [None]
  - HAEMORRHAGE [None]
  - BLINDNESS UNILATERAL [None]
  - HYPOXIA [None]
  - COUGH [None]
  - BLADDER CANCER [None]
  - OXYGEN SATURATION DECREASED [None]
  - PLEURAL EFFUSION [None]
  - CHEST PAIN [None]
  - DYSPNOEA EXERTIONAL [None]
  - PLEURISY [None]
  - PNEUMONIA CHLAMYDIAL [None]
  - RETINAL VEIN THROMBOSIS [None]
  - ULCER [None]
